FAERS Safety Report 16269174 (Version 1)
Quarter: 2019Q2

REPORT INFORMATION
  Report Type: Spontaneous
  Country: US (occurrence: US)
  Receive Date: 20190503
  Receipt Date: 20190503
  Transmission Date: 20190711
  Serious: No
  Sender: FDA-Public Use
  Company Number: US-TEVA-2019-US-1044382

PATIENT
  Sex: Female

DRUGS (1)
  1. LORAZEPAM 1 MG ACTAVIS [Suspect]
     Active Substance: LORAZEPAM
     Route: 065

REACTIONS (6)
  - Chills [Recovered/Resolved]
  - Burning sensation [Recovered/Resolved]
  - Feeling jittery [Unknown]
  - Tremor [Recovered/Resolved]
  - Anxiety [Recovered/Resolved]
  - Palpitations [Recovered/Resolved]

NARRATIVE: CASE EVENT DATE: 20180228
